FAERS Safety Report 9538892 (Version 2)
Quarter: 2013Q4

REPORT INFORMATION
  Report Type: Spontaneous
  Country: US (occurrence: US)
  Receive Date: 20130920
  Receipt Date: 20131015
  Transmission Date: 20140711
  Serious: No
  Sender: FDA-Public Use
  Company Number: US-009507513-1309USA009088

PATIENT
  Age: 75 Year
  Sex: Female
  Weight: 52.15 kg

DRUGS (12)
  1. MIRALAX [Suspect]
     Indication: CONSTIPATION
     Dosage: 17 G, QD
     Route: 048
     Dates: start: 201011, end: 201308
  2. SYNTHROID [Concomitant]
     Indication: PRODUCT USED FOR UNKNOWN INDICATION
     Dosage: UNK, UNKNOWN
  3. CALCIUM (UNSPECIFIED) [Concomitant]
     Indication: PRODUCT USED FOR UNKNOWN INDICATION
     Dosage: UNK, UNKNOWN
  4. BONIVA [Concomitant]
     Indication: PRODUCT USED FOR UNKNOWN INDICATION
     Dosage: UNK, UNKNOWN
  5. OMEGA-3 [Concomitant]
     Indication: PRODUCT USED FOR UNKNOWN INDICATION
     Dosage: UNK, UNKNOWN
  6. VITAMIN D (UNSPECIFIED) [Concomitant]
     Indication: PRODUCT USED FOR UNKNOWN INDICATION
     Dosage: UNK, UNKNOWN
  7. PROBIOTICA [Concomitant]
     Indication: PRODUCT USED FOR UNKNOWN INDICATION
     Dosage: UNK, UNKNOWN
  8. ASPIRIN [Concomitant]
     Indication: PRODUCT USED FOR UNKNOWN INDICATION
     Dosage: UNK, UNKNOWN
  9. ACEO [Concomitant]
     Indication: PRODUCT USED FOR UNKNOWN INDICATION
     Dosage: UNK, UNKNOWN
  10. CYANOCOBALAMIN [Concomitant]
     Indication: PRODUCT USED FOR UNKNOWN INDICATION
     Dosage: UNK, UNKNOWN
  11. UBIDECARENONE [Concomitant]
     Indication: PRODUCT USED FOR UNKNOWN INDICATION
     Dosage: UNK, UNKNOWN
  12. POTASSIUM (UNSPECIFIED) [Concomitant]
     Indication: PRODUCT USED FOR UNKNOWN INDICATION
     Dosage: UNK, UNKNOWN

REACTIONS (3)
  - Frequent bowel movements [Recovered/Resolved]
  - Diarrhoea [Recovered/Resolved]
  - Off label use [Unknown]
